FAERS Safety Report 17810785 (Version 1)
Quarter: 2020Q2

REPORT INFORMATION
  Report Type: Report from Study
  Country: FR (occurrence: FR)
  Receive Date: 20200521
  Receipt Date: 20200521
  Transmission Date: 20200714
  Serious: Yes (Death, Hospitalization)
  Sender: FDA-Public Use
  Company Number: FR-TEVA-2020-FR-1239182

PATIENT
  Sex: Female

DRUGS (5)
  1. DUROGESIC [Concomitant]
     Active Substance: FENTANYL
     Dates: start: 20100402
  2. LYTOS [Concomitant]
     Active Substance: CLODRONATE DISODIUM
     Dates: start: 20110307
  3. BENDAMUSTINE HCL [Suspect]
     Active Substance: BENDAMUSTINE HYDROCHLORIDE
     Indication: PLASMA CELL MYELOMA
     Dosage: 70 MG/M2 DAILY;
     Route: 041
     Dates: start: 20110607, end: 20110808
  4. VELCADE [Suspect]
     Active Substance: BORTEZOMIB
     Indication: PLASMA CELL MYELOMA
     Dates: start: 20110607, end: 20110808
  5. DEXAMETHASONE. [Suspect]
     Active Substance: DEXAMETHASONE
     Indication: PLASMA CELL MYELOMA
     Route: 048
     Dates: start: 20110607, end: 20110808

REACTIONS (2)
  - Diarrhoea [Fatal]
  - Dehydration [Fatal]
